FAERS Safety Report 9202251 (Version 2)
Quarter: 2013Q2

REPORT INFORMATION
  Report Type: Spontaneous
  Country: US (occurrence: US)
  Receive Date: 20130401
  Receipt Date: 20130618
  Transmission Date: 20140414
  Serious: Yes (Death)
  Sender: FDA-Public Use
  Company Number: US-GILEAD-2013-0072591

PATIENT
  Sex: Male

DRUGS (2)
  1. LETAIRIS [Suspect]
     Indication: PULMONARY HYPERTENSION
     Dosage: 10 MG, QD
     Route: 048
     Dates: start: 20080716, end: 20130326
  2. LETAIRIS [Suspect]
     Indication: AMPHETAMINES

REACTIONS (5)
  - Renal failure acute [Fatal]
  - Pulmonary hypertension [Fatal]
  - Hyperkalaemia [Fatal]
  - Gastrointestinal haemorrhage [Fatal]
  - Respiratory arrest [Fatal]
